FAERS Safety Report 8798814 (Version 2)
Quarter: 2013Q1

REPORT INFORMATION
  Report Type: Spontaneous
  Country: US (occurrence: US)
  Receive Date: 20120920
  Receipt Date: 20130131
  Transmission Date: 20140127
  Serious: Yes (Hospitalization)
  Sender: FDA-Public Use
  Company Number: US-GLAXOSMITHKLINE-A0920012A

PATIENT
  Age: 51 Year
  Sex: Male
  Weight: 82.3 kg

DRUGS (1)
  1. AVANDAMET [Suspect]
     Indication: DIABETES MELLITUS
     Route: 048
     Dates: start: 200710, end: 200712

REACTIONS (4)
  - Macular oedema [Not Recovered/Not Resolved]
  - Cardiac failure congestive [Unknown]
  - Visual acuity reduced [Unknown]
  - Coronary artery disease [Unknown]
